FAERS Safety Report 8078232-3 (Version None)
Quarter: 2012Q1

REPORT INFORMATION
  Report Type: 
  Country: None (occurrence: None)
  Receive Date: 20120123
  Receipt Date: 20120105
  Transmission Date: 20120608
  Serious: Yes (Hospitalization)
  Sender: FDA-Public Use
  Company Number: JPI-P-018657

PATIENT
  Age: 52 Year
  Sex: Female
  Weight: 67.1324 kg

DRUGS (7)
  1. VALPROIC ACID [Concomitant]
  2. SYMBICORT [Concomitant]
  3. PRILOSEC [Concomitant]
  4. XYREM [Suspect]
     Indication: CATAPLEXY
     Dosage: (2.25 GM), ORAL
     Route: 048
     Dates: start: 20100621
  5. IBUPROFEN [Concomitant]
  6. TOPAMAX [Concomitant]
  7. COUMADIN [Concomitant]

REACTIONS (2)
  - DEEP VEIN THROMBOSIS [None]
  - PHLEBITIS [None]
